FAERS Safety Report 9827458 (Version 1)
Quarter: 2014Q1

REPORT INFORMATION
  Report Type: Spontaneous
  Country: JP (occurrence: JP)
  Receive Date: 20140117
  Receipt Date: 20140117
  Transmission Date: 20141002
  Serious: Yes (Other)
  Sender: FDA-Public Use
  Company Number: JP-ROXANE LABORATORIES, INC.-2014-RO-00052RO

PATIENT
  Age: 67 Year
  Sex: Female

DRUGS (5)
  1. IMIPRAMINE PAMOATE [Suspect]
     Indication: PAIN
     Dosage: 20 MG
  2. OXYCODONE [Suspect]
     Indication: PAIN
  3. GABAPENTIN [Suspect]
     Indication: PAIN
  4. CHEMOTHERAPY [Concomitant]
     Indication: LUNG NEOPLASM MALIGNANT
  5. CHEMOTHERAPY [Concomitant]
     Indication: METASTASES TO BONE

REACTIONS (2)
  - Nausea [Unknown]
  - Drug ineffective [Recovered/Resolved]
